FAERS Safety Report 9051178 (Version 2)
Quarter: 2013Q1

REPORT INFORMATION
  Report Type: Spontaneous
  Country: CN (occurrence: CN)
  Receive Date: 20130206
  Receipt Date: 20130218
  Transmission Date: 20140127
  Serious: Yes (Hospitalization)
  Sender: FDA-Public Use
  Company Number: CN-BRISTOL-MYERS SQUIBB COMPANY-17324864

PATIENT
  Age: 63 Year
  Sex: Female

DRUGS (1)
  1. ENTECAVIR [Suspect]
     Indication: HEPATITIS B
     Dosage: DOSE RED TO 1/2 TAB/D
     Route: 048
     Dates: start: 201111

REACTIONS (2)
  - Intestinal obstruction [Recovering/Resolving]
  - Vomiting [Recovered/Resolved]
